FAERS Safety Report 9765838 (Version 1)
Quarter: 2013Q4

REPORT INFORMATION
  Report Type: Spontaneous
  Country: US (occurrence: US)
  Receive Date: 20131217
  Receipt Date: 20131217
  Transmission Date: 20140711
  Serious: No
  Sender: FDA-Public Use
  Company Number: US-BIOGENIDEC-2013BI113820

PATIENT
  Sex: Male
  Weight: 102 kg

DRUGS (9)
  1. TECFIDERA [Suspect]
     Indication: PRODUCT USED FOR UNKNOWN INDICATION
     Route: 048
  2. GABAPENTIN [Concomitant]
  3. REQUIP [Concomitant]
  4. PRAVASTATIN [Concomitant]
  5. HYDROCHOLOROTHIAZIDE [Concomitant]
  6. VICODIN [Concomitant]
  7. TRAMADOL HCL [Concomitant]
  8. CIPRO [Concomitant]
  9. CITALOPRAM [Concomitant]

REACTIONS (1)
  - Arthritis [Unknown]
